FAERS Safety Report 5292108-6 (Version None)
Quarter: 2007Q2

REPORT INFORMATION
  Report Type: 
  Country: None (occurrence: None)
  Receive Date: 20070403
  Receipt Date: 20070322
  Transmission Date: 20071010
  Serious: Yes (Other)
  Sender: FDA-Public Use
  Company Number: GXKR2007CA02757

PATIENT
  Age: 15 Year
  Sex: Female

DRUGS (3)
  1. CYCLOSPORINE [Suspect]
     Indication: PROPHYLAXIS
     Dosage: 1.5 MG/KG
  2. CYCLOPHOSPHAMIDE [Concomitant]
  3. METHOTREXATE [Concomitant]

REACTIONS (6)
  - BENIGN INTRACRANIAL HYPERTENSION [None]
  - CSF PRESSURE INCREASED [None]
  - LEUKAEMIA RECURRENT [None]
  - PAPILLOEDEMA [None]
  - RETINAL HAEMORRHAGE [None]
  - VISION BLURRED [None]
